FAERS Safety Report 7543724-X (Version None)
Quarter: 2011Q2

REPORT INFORMATION
  Report Type: 
  Country: None (occurrence: None)
  Receive Date: 20110613
  Receipt Date: 20040301
  Transmission Date: 20111010
  Serious: Yes (Death, Hospitalization)
  Sender: FDA-Public Use
  Company Number: PHHO2004CA01711

PATIENT
  Sex: Male

DRUGS (5)
  1. CLOZAPINE [Suspect]
     Indication: SCHIZOPHRENIA
     Dosage: 200 MG/DAY
     Route: 048
     Dates: start: 20030801
  2. COUMADIN [Concomitant]
     Dosage: 3.5 MG, QD
  3. NITRO-DUR [Concomitant]
     Dosage: 0.6 MG
     Route: 062
  4. ENALAPRIL MALEATE [Concomitant]
     Dosage: 5 MG, BID
     Route: 048
  5. METOPROLOL SUCCINATE [Concomitant]
     Dosage: 50 MG, QD
     Route: 048

REACTIONS (3)
  - MULTI-ORGAN DISORDER [None]
  - MYOCARDIAL INFARCTION [None]
  - CARDIAC DISORDER [None]
